FAERS Safety Report 23959830 (Version 2)
Quarter: 2024Q2

REPORT INFORMATION
  Report Type: Report from Study
  Country: CA (occurrence: CA)
  Receive Date: 20240611
  Receipt Date: 20240620
  Transmission Date: 20240716
  Serious: Yes (Other)
  Sender: FDA-Public Use
  Company Number: CA-AMGEN-CANSL2023149035

PATIENT
  Age: 74 Year
  Sex: Male

DRUGS (3)
  1. AVSOLA [Suspect]
     Active Substance: INFLIXIMAB-AXXQ
     Indication: Ankylosing spondylitis
     Dosage: 400 MILLIGRAM PER 5 WEEEKS
     Route: 065
     Dates: start: 20220214
  2. AVSOLA [Suspect]
     Active Substance: INFLIXIMAB-AXXQ
     Indication: Crohn^s disease
     Dosage: 400 MILLIGRAM/5WEEKS
     Route: 065
  3. AVSOLA [Suspect]
     Active Substance: INFLIXIMAB-AXXQ
     Dosage: 400 MILLIGRAM/5WEEKS
     Route: 065
     Dates: end: 20240604

REACTIONS (8)
  - Pleural effusion [Not Recovered/Not Resolved]
  - Inflammation [Unknown]
  - Nasopharyngitis [Unknown]
  - Off label use [Unknown]
  - Erythema [Unknown]
  - Epistaxis [Unknown]
  - COVID-19 [Unknown]
  - Dyspnoea [Unknown]

NARRATIVE: CASE EVENT DATE: 20220214
